FAERS Safety Report 14265720 (Version 5)
Quarter: 2018Q1

REPORT INFORMATION
  Report Type: Report from Study
  Country: US (occurrence: US)
  Receive Date: 20171208
  Receipt Date: 20180105
  Transmission Date: 20180508
  Serious: Yes (Disabling)
  Sender: FDA-Public Use
  Company Number: PHEH2017US039153

PATIENT
  Age: 59 Year
  Sex: Male
  Weight: 105.67 kg

DRUGS (1)
  1. SIMBRINZA [Suspect]
     Active Substance: BRIMONIDINE TARTRATE\BRINZOLAMIDE
     Indication: PRODUCT USED FOR UNKNOWN INDICATION
     Dosage: TID (BOTH EYES)
     Route: 047
     Dates: start: 20171010

REACTIONS (2)
  - Pain in extremity [Unknown]
  - Foot fracture [Unknown]

NARRATIVE: CASE EVENT DATE: 20171201
